FAERS Safety Report 20364341 (Version 1)
Quarter: 2022Q1

REPORT INFORMATION
  Report Type: Spontaneous
  Country: US (occurrence: None)
  Receive Date: 20220121
  Receipt Date: 20220121
  Transmission Date: 20220423
  Serious: Yes (Hospitalization)
  Sender: FDA-Public Use
  Company Number: None

PATIENT
  Age: 68 Year
  Sex: Male

DRUGS (1)
  1. EVEROLIMUS [Suspect]
     Active Substance: EVEROLIMUS
     Dosage: FREQUENCY : TWICE A DAY;?
     Route: 048
     Dates: start: 2017

REACTIONS (4)
  - Myocardial infarction [None]
  - Blood cholesterol increased [None]
  - Blood pressure increased [None]
  - Liver transplant [None]

NARRATIVE: CASE EVENT DATE: 20220102
